FAERS Safety Report 9486046 (Version 2)
Quarter: 2013Q3

REPORT INFORMATION
  Report Type: Report from Study
  Country: US (occurrence: US)
  Receive Date: 20130829
  Receipt Date: 20130904
  Transmission Date: 20140515
  Serious: Yes (Life-Threatening, Hospitalization, Other)
  Sender: FDA-Public Use
  Company Number: US-009507513-1308USA008659

PATIENT
  Age: 14 Year
  Sex: Male
  Weight: 59.5 kg

DRUGS (9)
  1. ELSPAR [Suspect]
     Indication: B PRECURSOR TYPE ACUTE LEUKAEMIA
     Dosage: 2500 IU/M2 INTRAMUSCULARLY (IM) OR IV ON DAYS 2, 8, 15 AND 22
     Dates: start: 20130701, end: 20130717
  2. PREDNISONE [Suspect]
     Indication: B PRECURSOR TYPE ACUTE LEUKAEMIA
     Dosage: 20 MG/M2, BID ON DAYS 1-28
     Route: 048
     Dates: start: 20130701, end: 20130717
  3. DOXORUBICIN [Suspect]
     Indication: B PRECURSOR TYPE ACUTE LEUKAEMIA
     Dosage: 60 MG/M2
     Route: 042
     Dates: start: 20130701, end: 20130702
  4. VELCADE [Suspect]
     Indication: B PRECURSOR TYPE ACUTE LEUKAEMIA
     Dosage: 1.3 MG/M2 ON DAYS 1, 4, 8 AND 11
     Route: 040
     Dates: start: 20130701, end: 20130712
  5. CYTARABINE [Suspect]
     Indication: B PRECURSOR TYPE ACUTE LEUKAEMIA
     Dosage: 70 MG ON DAY 1
     Route: 037
     Dates: start: 20130701, end: 20130701
  6. METHOTREXATE [Suspect]
     Indication: B PRECURSOR TYPE ACUTE LEUKAEMIA
     Dosage: 15 MG ON DAYS 15 AND 29
     Route: 037
     Dates: start: 20130701, end: 20130716
  7. VINCRISTINE SULFATE [Suspect]
     Indication: B PRECURSOR TYPE ACUTE LEUKAEMIA
     Dosage: 1.5 MG/M2 ON DAYS 1, 8, 15, AND 22
     Route: 040
     Dates: start: 20130701, end: 20130716
  8. CONCERTA [Concomitant]
     Indication: ATTENTION DEFICIT/HYPERACTIVITY DISORDER
  9. VYVANSE [Concomitant]
     Indication: ATTENTION DEFICIT/HYPERACTIVITY DISORDER

REACTIONS (13)
  - Acute respiratory distress syndrome [Unknown]
  - Sepsis [Recovered/Resolved]
  - Pneumonia staphylococcal [Recovering/Resolving]
  - Mucosal infection [Recovering/Resolving]
  - Hypoxia [Not Recovered/Not Resolved]
  - Lipase increased [Not Recovered/Not Resolved]
  - Device related infection [Not Recovered/Not Resolved]
  - Clostridium difficile colitis [Not Recovered/Not Resolved]
  - Stomatitis [Not Recovered/Not Resolved]
  - Hypokalaemia [Recovered/Resolved]
  - Acidosis [Not Recovered/Not Resolved]
  - Hyperkalaemia [Not Recovered/Not Resolved]
  - Pleural effusion [Not Recovered/Not Resolved]
